FAERS Safety Report 5154009-3 (Version None)
Quarter: 2006Q4

REPORT INFORMATION
  Report Type: 
  Country: None (occurrence: None)
  Receive Date: 20061120
  Receipt Date: 20061018
  Transmission Date: 20070319
  Serious: Yes (Death, Congenital Anomaly)
  Sender: FDA-Public Use
  Company Number: FR-GLAXOSMITHKLINE-B0442951A

PATIENT
  Age: 1 Day
  Sex: Male

DRUGS (2)
  1. LAMICTAL [Suspect]
     Indication: EPILEPSY
     Dosage: 100MG PER DAY
     Dates: start: 20040101
  2. SPECIAFOLDINE [Concomitant]
     Indication: PROPHYLAXIS
     Dates: start: 20060101, end: 20060301

REACTIONS (4)
  - BONE DEVELOPMENT ABNORMAL [None]
  - CARDIAC ARREST [None]
  - DRUG EXPOSURE DURING PREGNANCY [None]
  - PLEURAL EFFUSION [None]
